FAERS Safety Report 5500226-X (Version None)
Quarter: 2007Q4

REPORT INFORMATION
  Report Type: 
  Country: None (occurrence: None)
  Receive Date: 20071029
  Receipt Date: 20071020
  Transmission Date: 20080405
  Serious: Yes (Hospitalization)
  Sender: FDA-Public Use
  Company Number: BR-JNJFOC-20071005283

PATIENT
  Age: 13 Year
  Sex: Male
  Weight: 45 kg

DRUGS (4)
  1. HALDOL [Suspect]
     Indication: MULTIPLE DRUG OVERDOSE
     Route: 048
  2. PROMETHAZINE [Suspect]
     Indication: MULTIPLE DRUG OVERDOSE
  3. DIAZEPAM [Suspect]
     Indication: MULTIPLE DRUG OVERDOSE
  4. CHLORPROMAZINE [Suspect]
     Indication: MULTIPLE DRUG OVERDOSE

REACTIONS (7)
  - AGGRESSION [None]
  - AGITATION [None]
  - COMA [None]
  - ELECTROCARDIOGRAM CHANGE [None]
  - MIOSIS [None]
  - MULTIPLE DRUG OVERDOSE [None]
  - SOMNOLENCE [None]
